FAERS Safety Report 6624967-6 (Version None)
Quarter: 2010Q1

REPORT INFORMATION
  Report Type: 
  Country: None (occurrence: None)
  Receive Date: 20100310
  Receipt Date: 20090921
  Transmission Date: 20100710
  Serious: No
  Sender: FDA-Public Use
  Company Number: US-BIOGENIDEC-2009BI030103

PATIENT
  Age: 55 Year
  Sex: Female

DRUGS (2)
  1. AVONEX [Suspect]
     Indication: MULTIPLE SCLEROSIS
     Route: 030
     Dates: start: 20090806
  2. FENTANYL [Concomitant]

REACTIONS (10)
  - CHILLS [None]
  - ERYTHEMA [None]
  - FACIAL PAIN [None]
  - GENERAL PHYSICAL HEALTH DETERIORATION [None]
  - HEADACHE [None]
  - LETHARGY [None]
  - LOSS OF CONTROL OF LEGS [None]
  - PRURITUS [None]
  - PYREXIA [None]
  - ROSACEA [None]
